FAERS Safety Report 24014400 (Version 1)
Quarter: 2024Q2

REPORT INFORMATION
  Report Type: Spontaneous
  Country: JP (occurrence: JP)
  Receive Date: 20240626
  Receipt Date: 20240626
  Transmission Date: 20240716
  Serious: Yes (Death, Other)
  Sender: FDA-Public Use
  Company Number: JP-CHUGAI-2024020709

PATIENT
  Age: 77 Year
  Sex: Female
  Weight: 39 kg

DRUGS (15)
  1. ACTEMRA [Suspect]
     Active Substance: TOCILIZUMAB
     Indication: Still^s disease
     Dosage: 320 MILLIGRAM
     Route: 042
     Dates: start: 20231121, end: 20231121
  2. ACTEMRA [Suspect]
     Active Substance: TOCILIZUMAB
     Dosage: 320 MILLIGRAM
     Route: 042
     Dates: start: 20231130, end: 20231130
  3. NEORAL [Suspect]
     Active Substance: CYCLOSPORINE
     Indication: Still^s disease
     Dosage: 75 MILLIGRAM, BID
     Route: 050
     Dates: end: 20231211
  4. CYCLOSPORINE [Suspect]
     Active Substance: CYCLOSPORINE
     Indication: Still^s disease
     Dosage: 60 MILLIGRAM, BID
     Route: 050
     Dates: start: 20231105, end: 20231210
  5. PREDONINE [Concomitant]
     Active Substance: PREDNISOLONE
     Dosage: 40 MILLIGRAM
     Route: 050
     Dates: start: 20231105
  6. PREDONINE [Concomitant]
     Active Substance: PREDNISOLONE
     Dosage: UNK
     Route: 050
     Dates: start: 20231108, end: 20231211
  7. LANSOPRAZOLE [Concomitant]
     Active Substance: LANSOPRAZOLE
     Dosage: UNK
     Route: 050
     Dates: start: 20231105, end: 20231210
  8. ATOVAQUONE [Concomitant]
     Active Substance: ATOVAQUONE
     Dosage: UNK
     Route: 050
     Dates: start: 20231105, end: 20231210
  9. MIYA-BM [Concomitant]
     Active Substance: CLOSTRIDIUM BUTYRICUM SPORES STRAIN M-55
     Dosage: UNK
     Route: 050
     Dates: start: 20231105, end: 20231210
  10. ELDECALCITOL [Concomitant]
     Active Substance: ELDECALCITOL
     Dosage: UNK
     Route: 050
     Dates: start: 20231105, end: 20231210
  11. CALONAL [Concomitant]
     Active Substance: ACETAMINOPHEN
     Dosage: UNK
     Route: 050
     Dates: start: 20231105, end: 20231210
  12. REBAMIPIDE [Concomitant]
     Active Substance: REBAMIPIDE
     Dosage: UNK
     Route: 050
     Dates: start: 20231105, end: 20231210
  13. FEXOFENADINE HYDROCHLORIDE [Concomitant]
     Active Substance: FEXOFENADINE HYDROCHLORIDE
     Dosage: UNK
     Route: 050
     Dates: start: 20231201, end: 20231210
  14. MAGNESIUM OXIDE [Concomitant]
     Active Substance: MAGNESIUM OXIDE
     Dosage: UNK
     Route: 050
     Dates: start: 20231205, end: 20231210
  15. NIFEDIPINE [Concomitant]
     Active Substance: NIFEDIPINE
     Dosage: UNK
     Route: 050

REACTIONS (5)
  - Pancreatitis [Fatal]
  - Sepsis [Fatal]
  - Pancreatitis necrotising [Unknown]
  - Escherichia infection [Unknown]
  - Cytomegalovirus infection [Unknown]

NARRATIVE: CASE EVENT DATE: 20231201
